FAERS Safety Report 4749739-9 (Version None)
Quarter: 2005Q3

REPORT INFORMATION
  Report Type: 
  Country: None (occurrence: None)
  Receive Date: 20050819
  Receipt Date: 20050819
  Transmission Date: 20060218
  Serious: Yes (Other)
  Sender: FDA-Public Use
  Company Number: None

PATIENT
  Sex: Female

DRUGS (7)
  1. FORTEO [Suspect]
     Indication: OSTEOPOROSIS
     Dosage: 20MCG   QD   SQ
     Route: 058
  2. ASPIRIN [Concomitant]
  3. LASIX [Concomitant]
  4. AVALIDE100 [Concomitant]
  5. ZOCOR [Concomitant]
  6. ULTRAM [Concomitant]
  7. VICODIN ES [Concomitant]

REACTIONS (1)
  - MUSCLE SPASMS [None]
